FAERS Safety Report 17550557 (Version 1)
Quarter: 2020Q1

REPORT INFORMATION
  Report Type: Spontaneous
  Country: US (occurrence: US)
  Receive Date: 20200317
  Receipt Date: 20200317
  Transmission Date: 20200409
  Serious: Yes (Hospitalization, Disabling, Other)
  Sender: FDA-Public Use
  Company Number: None

PATIENT
  Age: 76 Year
  Sex: Female
  Weight: 71.1 kg

DRUGS (5)
  1. VITAMINS [Concomitant]
     Active Substance: VITAMINS
  2. MIRAPEX [Suspect]
     Active Substance: PRAMIPEXOLE DIHYDROCHLORIDE
     Indication: RESTLESS LEGS SYNDROME
     Route: 048
  3. CLONAZEPAM. [Concomitant]
     Active Substance: CLONAZEPAM
  4. ASPIRINS-ADULT [Concomitant]
  5. METAMUCIL [Concomitant]
     Active Substance: PLANTAGO SEED

REACTIONS (8)
  - Condition aggravated [None]
  - Nightmare [None]
  - Anxiety [None]
  - Tinnitus [None]
  - Insomnia [None]
  - Weight decreased [None]
  - Depression [None]
  - Decreased appetite [None]

NARRATIVE: CASE EVENT DATE: 20190115
